FAERS Safety Report 9753735 (Version 2)
Quarter: 2015Q3

REPORT INFORMATION
  Report Type: Spontaneous
  Country: US (occurrence: US)
  Receive Date: 20131213
  Receipt Date: 20150805
  Transmission Date: 20151125
  Serious: No
  Sender: FDA-Public Use
  Company Number: US-GILEAD-2010-0026563

PATIENT
  Age: 77 Year
  Sex: Female
  Weight: 97.52 kg

DRUGS (15)
  1. PRAVACHOL [Concomitant]
     Active Substance: PRAVASTATIN SODIUM
  2. PATANOL EYE DROP [Concomitant]
  3. KLONOPIN [Concomitant]
     Active Substance: CLONAZEPAM
  4. ATACAND [Concomitant]
     Active Substance: CANDESARTAN CILEXETIL
  5. VITAMIN B12 [Concomitant]
     Active Substance: CYANOCOBALAMIN
  6. CALCIUM +D [Concomitant]
     Active Substance: CALCIUM\VITAMIN D
  7. HYDROCHLORTHIAZIDE [Concomitant]
     Active Substance: HYDROCHLOROTHIAZIDE
  8. ASPIRIN. [Concomitant]
     Active Substance: ASPIRIN
  9. SYNTHROID [Concomitant]
     Active Substance: LEVOTHYROXINE SODIUM
  10. CLARINEX [Concomitant]
     Active Substance: DESLORATADINE
  11. LETAIRIS [Suspect]
     Active Substance: AMBRISENTAN
     Indication: PULMONARY ARTERIAL HYPERTENSION
     Route: 048
     Dates: start: 20070922
  12. FISH OIL [Concomitant]
     Active Substance: FISH OIL
  13. CENTRUM SILVER [Concomitant]
     Active Substance: VITAMINS
  14. ATENOLOL. [Concomitant]
     Active Substance: ATENOLOL
  15. ADVIL [Concomitant]
     Active Substance: IBUPROFEN

REACTIONS (1)
  - Spider vein [Unknown]
